FAERS Safety Report 19948348 (Version 1)
Quarter: 2021Q4

REPORT INFORMATION
  Report Type: Report from Study
  Country: GB (occurrence: GB)
  Receive Date: 20211012
  Receipt Date: 20211012
  Transmission Date: 20220303
  Serious: Yes (Life-Threatening, Hospitalization, Other)
  Sender: FDA-Public Use
  Company Number: GB-SEATTLE GENETICS-2020SGN02082

PATIENT
  Age: 42 Year
  Sex: Female
  Weight: 55 kg

DRUGS (13)
  1. TISOTUMAB VEDOTIN [Suspect]
     Active Substance: TISOTUMAB VEDOTIN
     Indication: Cervix carcinoma
     Dosage: 2 MILLIGRAM/KILOGRAM, 1Q3W
     Route: 041
     Dates: start: 20200303, end: 20200406
  2. PEMBROLIZUMAB [Suspect]
     Active Substance: PEMBROLIZUMAB
     Indication: Cervix carcinoma
     Dosage: 200 MILLIGRAM, 1Q3W
     Route: 041
     Dates: start: 20200303, end: 20200406
  3. ACETAMINOPHEN [Concomitant]
     Active Substance: ACETAMINOPHEN
     Indication: Prophylaxis
     Dosage: 1 GRAM, QID
     Route: 048
     Dates: start: 20200115
  4. IRON [Concomitant]
     Active Substance: IRON
     Indication: Prophylaxis
     Dosage: 2 TABLETS, QD
     Route: 048
     Dates: start: 20200113
  5. MAGNESIUM SALICYLATE [Concomitant]
     Active Substance: MAGNESIUM SALICYLATE
     Indication: Prophylaxis
     Dosage: 30 MILLIGRAM, BID
     Route: 048
     Dates: start: 20200116
  6. METOCLOPRAMIDE [Concomitant]
     Active Substance: METOCLOPRAMIDE
     Indication: Prophylaxis
     Dosage: 10 MILLIGRAM, PRN
     Route: 048
     Dates: start: 20200130
  7. OMEPRAZOLE [Concomitant]
     Active Substance: OMEPRAZOLE
     Indication: Prophylaxis
     Dosage: 20 MILLIGRAM, QD
     Route: 048
     Dates: start: 20200130
  8. TINZAPARIN [Concomitant]
     Active Substance: TINZAPARIN
     Indication: Deep vein thrombosis
     Dosage: 10000 NANOGRAM, QD
     Route: 048
     Dates: start: 20200316
  9. COTRIMOXAZOLE [Concomitant]
     Active Substance: SULFAMETHOXAZOLE\TRIMETHOPRIM
     Indication: Prophylaxis
     Dosage: 960 MILLIGRAM, MONDAYS, WEDNESDAYS, FRIDAYS
     Route: 048
     Dates: start: 20200316
  10. PREDNISOLONE [Concomitant]
     Active Substance: PREDNISOLONE
     Indication: Aspartate aminotransferase increased
     Dosage: 50 MILLIGRAM, QD
     Route: 048
     Dates: start: 20200316, end: 20200403
  11. PREDNISOLONE [Concomitant]
     Active Substance: PREDNISOLONE
     Dosage: 5 MILLIGRAM, QD
     Route: 048
     Dates: start: 20200403
  12. NITROFURANTOIN [Concomitant]
     Active Substance: NITROFURANTOIN
     Indication: Prophylaxis
     Dosage: 50 MILLIGRAM, QID
     Route: 048
     Dates: start: 20200330
  13. FLUCONAZOLE [Concomitant]
     Active Substance: FLUCONAZOLE
     Indication: Prophylaxis
     Dosage: 50 MILLIGRAM/KILOGRAM, QD (ONCE DAILY)
     Route: 048
     Dates: start: 20200330, end: 20200405

REACTIONS (2)
  - Peripheral ischaemia [Not Recovered/Not Resolved]
  - Acute kidney injury [Recovered/Resolved]

NARRATIVE: CASE EVENT DATE: 20200423
